FAERS Safety Report 9332603 (Version 1)
Quarter: 2013Q2

REPORT INFORMATION
  Report Type: Spontaneous
  Country: US (occurrence: US)
  Receive Date: 20130606
  Receipt Date: 20130606
  Transmission Date: 20140414
  Serious: Yes (Other)
  Sender: FDA-Public Use
  Company Number: US-JNJFOC-20130522725

PATIENT
  Age: 32 Year
  Sex: Male

DRUGS (3)
  1. PSEUDOEPHEDRINE HYDROCHLORIDE [Suspect]
     Indication: NASAL CONGESTION
     Route: 065
  2. PSEUDOEPHEDRINE HYDROCHLORIDE [Suspect]
     Indication: HYPERSENSITIVITY
     Route: 065
  3. LORATADINE [Concomitant]

REACTIONS (3)
  - Withdrawal syndrome [Unknown]
  - Major depression [Unknown]
  - Therapeutic response unexpected [Unknown]
